FAERS Safety Report 20368841 (Version 1)
Quarter: 2022Q1

REPORT INFORMATION
  Report Type: Spontaneous
  Country: US (occurrence: None)
  Receive Date: 20220121
  Receipt Date: 20220121
  Transmission Date: 20220424
  Serious: Yes (Other)
  Sender: FDA-Public Use
  Company Number: None

PATIENT
  Sex: Female

DRUGS (3)
  1. HUMIRA [Suspect]
     Active Substance: ADALIMUMAB
     Indication: Rheumatoid arthritis
     Dosage: OTHER QUANTITY : 40/0.4 MG/ML;?FREQUENCY : EVERY OTHER WEEK;??INJECT 1 PEN UNDER THE SKIN (SUBCUTANE
     Route: 058
     Dates: start: 20200228
  2. VITAMIN B12 [Concomitant]
     Active Substance: CYANOCOBALAMIN
  3. WELLBUTRIN XL [Concomitant]
     Active Substance: BUPROPION HYDROCHLORIDE

REACTIONS (3)
  - Loss of personal independence in daily activities [None]
  - Rheumatoid arthritis [None]
  - Pain [None]
